FAERS Safety Report 6761388-X (Version None)
Quarter: 2010Q2

REPORT INFORMATION
  Report Type: 
  Country: None (occurrence: None)
  Receive Date: 20100607
  Receipt Date: 20100525
  Transmission Date: 20101027
  Serious: Yes (Hospitalization, Other)
  Sender: FDA-Public Use
  Company Number: DE-1181483

PATIENT
  Age: 54 Year
  Sex: Male

DRUGS (2)
  1. TRAVATAN [Suspect]
     Indication: GLAUCOMA
     Dosage: 1 GTT QD OU, OPHTHALMIC
     Route: 047
     Dates: start: 20080428, end: 20100323
  2. SIMVASTATIN [Concomitant]

REACTIONS (3)
  - DEAFNESS TRANSITORY [None]
  - DEAFNESS UNILATERAL [None]
  - TINNITUS [None]
